FAERS Safety Report 21729418 (Version 1)
Quarter: 2022Q4

REPORT INFORMATION
  Report Type: Spontaneous
  Country: DE (occurrence: DE)
  Receive Date: 20221214
  Receipt Date: 20221214
  Transmission Date: 20230113
  Serious: Yes (Other)
  Sender: FDA-Public Use
  Company Number: DE-MYLANLABS-2022M1138761

PATIENT
  Age: 54 Year
  Sex: Male

DRUGS (16)
  1. FLUOROURACIL [Suspect]
     Active Substance: FLUOROURACIL
     Indication: Mixed adenoneuroendocrine carcinoma
     Dosage: UNK (OVER A 2-WEEK INTERVAL AS PART OF FOLFOX REGIMEN)
     Route: 065
  2. FLUOROURACIL [Suspect]
     Active Substance: FLUOROURACIL
     Indication: Endocrine neoplasm
  3. FLUOROURACIL [Suspect]
     Active Substance: FLUOROURACIL
     Indication: Mixed adenoneuroendocrine carcinoma
     Dosage: UNK, Q2W (ONCE EVERY 2 WEEKS, AS PART OF FOLFIRI REGIMEN)
     Route: 065
  4. FLUOROURACIL [Suspect]
     Active Substance: FLUOROURACIL
     Indication: Endocrine neoplasm
  5. BEVACIZUMAB [Suspect]
     Active Substance: BEVACIZUMAB
     Indication: Mixed adenoneuroendocrine carcinoma
     Dosage: UNK (OVER A 2-WEEK INTERVAL)
     Route: 065
  6. BEVACIZUMAB [Suspect]
     Active Substance: BEVACIZUMAB
     Indication: Endocrine neoplasm
  7. LEUCOVORIN [Suspect]
     Active Substance: LEUCOVORIN
     Indication: Mixed adenoneuroendocrine carcinoma
     Dosage: UNK (OVER A 2-WEEK INTERVAL AS PART OF FOLFOX REGIMEN)
     Route: 065
  8. LEUCOVORIN [Suspect]
     Active Substance: LEUCOVORIN
     Indication: Endocrine neoplasm
  9. LEUCOVORIN [Suspect]
     Active Substance: LEUCOVORIN
     Indication: Mixed adenoneuroendocrine carcinoma
     Dosage: UNK, Q2W, ONCE EVERY 2 WEEKS, AS PART OF FOLFIRI REGIMEN
     Route: 065
  10. LEUCOVORIN [Suspect]
     Active Substance: LEUCOVORIN
     Indication: Endocrine neoplasm
  11. OXALIPLATIN [Suspect]
     Active Substance: OXALIPLATIN
     Indication: Mixed adenoneuroendocrine carcinoma
     Dosage: UNK (OVER A 2-WEEK INTERVAL)
     Route: 065
  12. OXALIPLATIN [Suspect]
     Active Substance: OXALIPLATIN
     Indication: Endocrine neoplasm
  13. IRINOTECAN [Suspect]
     Active Substance: IRINOTECAN
     Indication: Mixed adenoneuroendocrine carcinoma
     Dosage: UNK (ONCE EVERY 2 WEEKS)
     Route: 065
  14. IRINOTECAN [Suspect]
     Active Substance: IRINOTECAN
     Indication: Endocrine neoplasm
  15. AFLIBERCEPT [Suspect]
     Active Substance: AFLIBERCEPT
     Indication: Mixed adenoneuroendocrine carcinoma
     Dosage: UNK (ONCE EVERY 2 WEEKS)
     Route: 065
  16. AFLIBERCEPT [Suspect]
     Active Substance: AFLIBERCEPT
     Indication: Endocrine neoplasm

REACTIONS (2)
  - Drug ineffective [Unknown]
  - Neoplasm progression [Unknown]
